FAERS Safety Report 17144565 (Version 2)
Quarter: 2019Q4

REPORT INFORMATION
  Report Type: Spontaneous
  Country: JP (occurrence: JP)
  Receive Date: 20191212
  Receipt Date: 20191223
  Transmission Date: 20200122
  Serious: Yes (Hospitalization, Other)
  Sender: FDA-Public Use
  Company Number: JP-SA-2019SA334983

PATIENT
  Age: 54 Year
  Sex: Female
  Weight: 72.7 kg

DRUGS (2)
  1. TS-1 [Concomitant]
     Active Substance: GIMERACIL\OTERACIL\TEGAFUR
     Indication: GASTRIC CANCER
     Dosage: 80-120 MG/DAY
     Route: 065
  2. OXALIPLATIN. [Suspect]
     Active Substance: OXALIPLATIN
     Indication: GASTRIC CANCER
     Dosage: 130 MG/M2 ON DAY 1
     Route: 065

REACTIONS (10)
  - Atrophy [Recovered/Resolved]
  - Muscular weakness [Recovered/Resolved]
  - Balance disorder [Recovered/Resolved]
  - Hereditary motor and sensory neuropathy [Unknown]
  - Hypoaesthesia [Recovered/Resolved]
  - Peripheral sensory neuropathy [Recovered/Resolved]
  - Areflexia [Recovered/Resolved]
  - Blood creatine phosphokinase increased [Unknown]
  - Myalgia [Recovered/Resolved]
  - Hyporeflexia [Recovered/Resolved]
